FAERS Safety Report 10713211 (Version 1)
Quarter: 2015Q1

REPORT INFORMATION
  Report Type: Spontaneous
  Country: DE (occurrence: DE)
  Receive Date: 20150115
  Receipt Date: 20150115
  Transmission Date: 20150721
  Serious: Yes (Hospitalization, Other)
  Sender: FDA-Public Use
  Company Number: DE-NAPPMUNDI-DEU-2014-0014752

PATIENT
  Sex: Male

DRUGS (2)
  1. TARGIN 20/10 MG RETARDTABLETTEN [Suspect]
     Active Substance: NALOXONE HYDROCHLORIDE\OXYCODONE HYDROCHLORIDE
     Indication: PRODUCT USED FOR UNKNOWN INDICATION
     Dosage: 1400/700-1600/800 MG, SINGLE
     Route: 048
     Dates: start: 20140524, end: 20140524
  2. DIAZEPAM. [Suspect]
     Active Substance: DIAZEPAM
     Indication: PRODUCT USED FOR UNKNOWN INDICATION
     Dosage: 300-400MG MG, SINGLE
     Route: 048
     Dates: start: 20140524, end: 20140524

REACTIONS (4)
  - Intentional overdose [Unknown]
  - Suicide attempt [Unknown]
  - Drug diversion [Unknown]
  - Intentional overdose [None]

NARRATIVE: CASE EVENT DATE: 20140524
